FAERS Safety Report 7277960-7 (Version None)
Quarter: 2011Q1

REPORT INFORMATION
  Report Type: 
  Country: None (occurrence: None)
  Receive Date: 20110207
  Receipt Date: 20110125
  Transmission Date: 20110831
  Serious: Yes (Other)
  Sender: FDA-Public Use
  Company Number: CA-ELI_LILLY_AND_COMPANY-CA201101006266

PATIENT
  Sex: Male
  Weight: 81.179 kg

DRUGS (2)
  1. CIALIS [Suspect]
     Indication: ERECTILE DYSFUNCTION
     Dosage: 20 MG, 2/D
  2. ATROVENT [Concomitant]
     Indication: ASTHMA
     Dosage: 1 D/F, DAILY (1/D)
     Route: 055

REACTIONS (2)
  - OVERDOSE [None]
  - OPTIC ISCHAEMIC NEUROPATHY [None]
